FAERS Safety Report 5795601-2 (Version None)
Quarter: 2008Q2

REPORT INFORMATION
  Report Type: 
  Country: None (occurrence: None)
  Receive Date: 20080630
  Receipt Date: 20080618
  Transmission Date: 20081010
  Serious: Yes (Other)
  Sender: FDA-Public Use
  Company Number: US-PFIZER INC-2008052174

PATIENT
  Sex: Male
  Weight: 53.5 kg

DRUGS (3)
  1. LYRICA [Suspect]
  2. OXYCONTIN [Concomitant]
  3. PAXIL [Concomitant]

REACTIONS (4)
  - CHOKING [None]
  - HYPERSENSITIVITY [None]
  - OEDEMA PERIPHERAL [None]
  - PHARYNGEAL OEDEMA [None]
